FAERS Safety Report 25180261 (Version 1)
Quarter: 2025Q2

REPORT INFORMATION
  Report Type: Spontaneous
  Country: DE (occurrence: DE)
  Receive Date: 20250409
  Receipt Date: 20250409
  Transmission Date: 20250717
  Serious: Yes (Hospitalization, Other)
  Sender: MYLAN
  Company Number: None

PATIENT
  Age: 23 Year
  Sex: Female
  Weight: 55 kg

DRUGS (36)
  1. DOXYCYCLINE [Suspect]
     Active Substance: DOXYCYCLINE
     Indication: Product used for unknown indication
     Route: 065
  2. DOXYCYCLINE [Suspect]
     Active Substance: DOXYCYCLINE
  3. DOXYCYCLINE [Suspect]
     Active Substance: DOXYCYCLINE
  4. DOXYCYCLINE [Suspect]
     Active Substance: DOXYCYCLINE
     Route: 065
  5. DOXYCYCLINE [Suspect]
     Active Substance: DOXYCYCLINE
     Route: 065
  6. DOXYCYCLINE [Suspect]
     Active Substance: DOXYCYCLINE
  7. DOXYCYCLINE [Suspect]
     Active Substance: DOXYCYCLINE
  8. DOXYCYCLINE [Suspect]
     Active Substance: DOXYCYCLINE
     Route: 065
  9. ACETAMINOPHEN [Suspect]
     Active Substance: ACETAMINOPHEN
     Indication: Product used for unknown indication
  10. ACETAMINOPHEN [Suspect]
     Active Substance: ACETAMINOPHEN
     Route: 065
  11. ACETAMINOPHEN [Suspect]
     Active Substance: ACETAMINOPHEN
     Route: 065
  12. ACETAMINOPHEN [Suspect]
     Active Substance: ACETAMINOPHEN
  13. MINOCYCLINE HYDROCHLORIDE [Suspect]
     Active Substance: MINOCYCLINE HYDROCHLORIDE
     Indication: Product used for unknown indication
  14. MINOCYCLINE HYDROCHLORIDE [Suspect]
     Active Substance: MINOCYCLINE HYDROCHLORIDE
     Route: 065
  15. MINOCYCLINE HYDROCHLORIDE [Suspect]
     Active Substance: MINOCYCLINE HYDROCHLORIDE
     Route: 065
  16. MINOCYCLINE HYDROCHLORIDE [Suspect]
     Active Substance: MINOCYCLINE HYDROCHLORIDE
  17. METAMIZOLE SODIUM [Suspect]
     Active Substance: METAMIZOLE SODIUM
     Indication: Product used for unknown indication
  18. METAMIZOLE SODIUM [Suspect]
     Active Substance: METAMIZOLE SODIUM
     Route: 065
  19. METAMIZOLE SODIUM [Suspect]
     Active Substance: METAMIZOLE SODIUM
     Route: 065
  20. METAMIZOLE SODIUM [Suspect]
     Active Substance: METAMIZOLE SODIUM
  21. CETIRIZINE HYDROCHLORIDE [Suspect]
     Active Substance: CETIRIZINE HYDROCHLORIDE
     Indication: Product used for unknown indication
  22. CETIRIZINE HYDROCHLORIDE [Suspect]
     Active Substance: CETIRIZINE HYDROCHLORIDE
     Route: 065
  23. CETIRIZINE HYDROCHLORIDE [Suspect]
     Active Substance: CETIRIZINE HYDROCHLORIDE
     Route: 065
  24. CETIRIZINE HYDROCHLORIDE [Suspect]
     Active Substance: CETIRIZINE HYDROCHLORIDE
  25. ASCORBIC ACID\CETYLPYRIDINIUM CHLORIDE\DEQUALINIUM CHLORIDE\HESPERIDIN [Suspect]
     Active Substance: ASCORBIC ACID\CETYLPYRIDINIUM CHLORIDE\DEQUALINIUM CHLORIDE\HESPERIDIN METHYLCHALCONE
     Indication: Product used for unknown indication
  26. ASCORBIC ACID\CETYLPYRIDINIUM CHLORIDE\DEQUALINIUM CHLORIDE\HESPERIDIN [Suspect]
     Active Substance: ASCORBIC ACID\CETYLPYRIDINIUM CHLORIDE\DEQUALINIUM CHLORIDE\HESPERIDIN METHYLCHALCONE
     Route: 065
  27. ASCORBIC ACID\CETYLPYRIDINIUM CHLORIDE\DEQUALINIUM CHLORIDE\HESPERIDIN [Suspect]
     Active Substance: ASCORBIC ACID\CETYLPYRIDINIUM CHLORIDE\DEQUALINIUM CHLORIDE\HESPERIDIN METHYLCHALCONE
     Route: 065
  28. ASCORBIC ACID\CETYLPYRIDINIUM CHLORIDE\DEQUALINIUM CHLORIDE\HESPERIDIN [Suspect]
     Active Substance: ASCORBIC ACID\CETYLPYRIDINIUM CHLORIDE\DEQUALINIUM CHLORIDE\HESPERIDIN METHYLCHALCONE
  29. CLINDAMYCIN HYDROCHLORIDE [Suspect]
     Active Substance: CLINDAMYCIN HYDROCHLORIDE
     Indication: Product used for unknown indication
  30. CLINDAMYCIN HYDROCHLORIDE [Suspect]
     Active Substance: CLINDAMYCIN HYDROCHLORIDE
     Route: 065
  31. CLINDAMYCIN HYDROCHLORIDE [Suspect]
     Active Substance: CLINDAMYCIN HYDROCHLORIDE
     Route: 065
  32. CLINDAMYCIN HYDROCHLORIDE [Suspect]
     Active Substance: CLINDAMYCIN HYDROCHLORIDE
  33. ALCOHOL [Suspect]
     Active Substance: ALCOHOL
     Indication: Product used for unknown indication
  34. ALCOHOL [Suspect]
     Active Substance: ALCOHOL
     Route: 065
  35. ALCOHOL [Suspect]
     Active Substance: ALCOHOL
     Route: 065
  36. ALCOHOL [Suspect]
     Active Substance: ALCOHOL

REACTIONS (3)
  - Conversion disorder [Unknown]
  - Suicide attempt [Unknown]
  - Overdose [Unknown]
